FAERS Safety Report 19630871 (Version 4)
Quarter: 2021Q4

REPORT INFORMATION
  Report Type: Report from Study
  Country: CA (occurrence: CA)
  Receive Date: 20210729
  Receipt Date: 20211209
  Transmission Date: 20220303
  Serious: Yes (Other)
  Sender: FDA-Public Use
  Company Number: CA-BRISTOL-MYERS SQUIBB COMPANY-BMS-2021-061272

PATIENT
  Age: 78 Year
  Sex: Female
  Weight: 102 kg

DRUGS (2)
  1. ABATACEPT [Suspect]
     Active Substance: ABATACEPT
     Indication: Rheumatoid arthritis
     Dosage: 1000 MILLIGRAM, QMO
     Route: 042
     Dates: start: 20140915, end: 20190703
  2. ABATACEPT [Suspect]
     Active Substance: ABATACEPT
     Dosage: UNK UNK, Q4WK
     Route: 042
     Dates: start: 20140915, end: 20210525

REACTIONS (8)
  - Spinal stenosis [Not Recovered/Not Resolved]
  - Fall [Recovering/Resolving]
  - Foot fracture [Unknown]
  - Scab [Unknown]
  - Skin ulcer [Recovered/Resolved]
  - Intentional dose omission [Unknown]
  - Asthenia [Not Recovered/Not Resolved]
  - Peripheral swelling [Unknown]

NARRATIVE: CASE EVENT DATE: 20210721
